FAERS Safety Report 9359836 (Version 1)
Quarter: 2013Q2

REPORT INFORMATION
  Report Type: Spontaneous
  Country: CA (occurrence: CA)
  Receive Date: 20130621
  Receipt Date: 20130621
  Transmission Date: 20140414
  Serious: Yes (Life-Threatening)
  Sender: FDA-Public Use
  Company Number: CA-ROCHE-1237229

PATIENT
  Sex: Female

DRUGS (3)
  1. ACCUTANE [Suspect]
     Indication: PRODUCT USED FOR UNKNOWN INDICATION
     Dosage: THERAPY FOR 4 MONTH
     Route: 065
  2. ACCUTANE [Suspect]
     Dosage: THERAPY FOR 2 MONTHS
     Route: 065
  3. CLARUS (CANADA) [Suspect]
     Indication: PRODUCT USED FOR UNKNOWN INDICATION
     Route: 065

REACTIONS (12)
  - Anxiety [Recovered/Resolved]
  - Bone pain [Recovered/Resolved]
  - Depressed mood [Recovered/Resolved]
  - Dry skin [Recovered/Resolved]
  - Hyperhidrosis [Recovered/Resolved]
  - Joint ankylosis [Recovered/Resolved]
  - Pain [Recovered/Resolved]
  - Panic attack [Recovered/Resolved]
  - Photosensitivity reaction [Recovered/Resolved]
  - Stress [Recovered/Resolved]
  - Suicidal ideation [Recovered/Resolved]
  - Tremor [Recovered/Resolved]
